FAERS Safety Report 18757342 (Version 1)
Quarter: 2021Q1

REPORT INFORMATION
  Report Type: Spontaneous
  Country: DE (occurrence: DE)
  Receive Date: 20210119
  Receipt Date: 20210119
  Transmission Date: 20210419
  Serious: Yes (Death, Other)
  Sender: FDA-Public Use
  Company Number: NVSC2021DE008729

PATIENT

DRUGS (7)
  1. PENTASA [Suspect]
     Active Substance: MESALAMINE
     Indication: COLITIS ULCERATIVE
     Dosage: (4000 MG, QD (0. ? 38.5. GESTATIONAL WEEK) MATERNAL DOSE)
     Route: 064
     Dates: start: 20191122, end: 20200819
  2. PENTASA [Suspect]
     Active Substance: MESALAMINE
     Dosage: (1000 MG, QOD (SUPPOSITORY) MATERNAL DOSE)
     Route: 064
     Dates: start: 20191122, end: 20200819
  3. CORTIMENT [Concomitant]
     Indication: FOETAL EXPOSURE DURING PREGNANCY
     Dosage: (9 MG, QD (11.1. ? 12.5. GESTATIONAL WEEK) METARNAL DOSE
     Route: 064
     Dates: start: 20200208, end: 20200219
  4. MISOPROSTOL. [Concomitant]
     Active Substance: MISOPROSTOL
     Indication: FOETAL EXPOSURE DURING PREGNANCY
     Dosage: (38.4. ? 38.4. GESTATIONAL WEEK)
     Route: 064
     Dates: start: 20200818, end: 20200818
  5. PREDNISOLONE. [Suspect]
     Active Substance: PREDNISOLONE
     Indication: FOETAL EXPOSURE DURING PREGNANCY
     Dosage: ()50 MG, QD (50 [MG/D (BIS 30 MG/D) ]) (12.6. ? 38.5. GESTATIONAL WEEK) MATERNAL DOSE
     Route: 064
     Dates: start: 20200220, end: 20200819
  6. COLECALCIFEROL [Concomitant]
     Active Substance: CHOLECALCIFEROL
     Indication: FOETAL EXPOSURE DURING PREGNANCY
     Dosage: (4000 IE, QD (12.6. ? 15. GESTATIONAL WEEK) ,MATERNAL DOSE
     Route: 064
     Dates: start: 20200220, end: 20200306
  7. CEFTRIAXON [Concomitant]
     Active Substance: CEFTRIAXONE
     Indication: FOETAL EXPOSURE DURING PREGNANCY
     Dosage: (38.4. ? 38.5. GESTATIONAL WEEK)
     Route: 064
     Dates: start: 20200818, end: 20200819

REACTIONS (3)
  - Exposure during pregnancy [Unknown]
  - Stillbirth [Fatal]
  - Foetal death [Fatal]
